FAERS Safety Report 5512309-9 (Version None)
Quarter: 2007Q4

REPORT INFORMATION
  Report Type: 
  Country: None (occurrence: None)
  Receive Date: 20071112
  Receipt Date: 20071010
  Transmission Date: 20080405
  Serious: No
  Sender: FDA-Public Use
  Company Number: A0686914A

PATIENT
  Age: 54 Year
  Sex: Male

DRUGS (3)
  1. VERAMYST [Suspect]
     Dosage: 1SPR PER DAY
     Route: 045
     Dates: start: 20071008
  2. CLONIDINE [Concomitant]
  3. PROCARDIA [Concomitant]

REACTIONS (4)
  - DYSPNOEA [None]
  - HEART RATE INCREASED [None]
  - NECK PAIN [None]
  - POSTNASAL DRIP [None]
